FAERS Safety Report 10568174 (Version 2)
Quarter: 2015Q1

REPORT INFORMATION
  Report Type: Spontaneous
  Country: ES (occurrence: ES)
  Receive Date: 20141106
  Receipt Date: 20150129
  Transmission Date: 20150720
  Serious: Yes (Hospitalization, Other)
  Sender: FDA-Public Use
  Company Number: ES-ASTELLAS-2014EU014007

PATIENT
  Sex: Male

DRUGS (2)
  1. XTANDI [Suspect]
     Active Substance: ENZALUTAMIDE
     Indication: PROSTATE CANCER
     Route: 048
     Dates: start: 20140916
  2. XTANDI [Suspect]
     Active Substance: ENZALUTAMIDE
     Dosage: 120 UNK, UNK
     Route: 048

REACTIONS (8)
  - Suicide attempt [Unknown]
  - Malignant neoplasm progression [Unknown]
  - Metastases to liver [Unknown]
  - Metastases to retroperitoneum [Unknown]
  - Anaemia [Not Recovered/Not Resolved]
  - Metastases to bone [Unknown]
  - Thrombocytopenia [Unknown]
  - Laceration [Unknown]

NARRATIVE: CASE EVENT DATE: 20141010
